FAERS Safety Report 4436130-8 (Version None)
Quarter: 2004Q3

REPORT INFORMATION
  Report Type: 
  Country: None (occurrence: None)
  Receive Date: 20040728
  Receipt Date: 20040427
  Transmission Date: 20050211
  Serious: Yes (Other)
  Sender: FDA-Public Use
  Company Number: 206127

PATIENT
  Age: 50 Year
  Sex: Male

DRUGS (6)
  1. RITUXAN [Suspect]
     Indication: CHRONIC LYMPHOCYTIC LEUKAEMIA
     Dosage: INTRAVENOUS
     Route: 042
     Dates: start: 20030801
  2. FLUDARABINE (FLUDARABINE PHOSPHATE)` [Concomitant]
  3. TYLENOL [Concomitant]
  4. BENADRYL (DIPHENYDRAMINIE HYDROCHLORIDE) [Concomitant]
  5. TAGAMET [Concomitant]
  6. DEMEROL [Concomitant]

REACTIONS (2)
  - CHILLS [None]
  - RASH GENERALISED [None]
